FAERS Safety Report 8334302-3 (Version None)
Quarter: 2012Q2

REPORT INFORMATION
  Report Type: 
  Country: None (occurrence: None)
  Receive Date: 20120503
  Receipt Date: 20120424
  Transmission Date: 20120825
  Serious: Yes (Other)
  Sender: FDA-Public Use
  Company Number: CH-ABBOTT-12P-151-0910355-00

PATIENT
  Age: 45 Year
  Sex: Female

DRUGS (2)
  1. HUMIRA [Suspect]
     Indication: ANKYLOSING SPONDYLITIS
  2. HUMIRA [Suspect]
     Indication: SPONDYLITIS
     Dosage: 4 INJECTIONS
     Dates: start: 20120201

REACTIONS (3)
  - FORMICATION [None]
  - PARAESTHESIA [None]
  - MULTIPLE SCLEROSIS [None]
